FAERS Safety Report 8442572-6 (Version None)
Quarter: 2012Q2

REPORT INFORMATION
  Report Type: 
  Country: None (occurrence: None)
  Receive Date: 20120615
  Receipt Date: 20110916
  Transmission Date: 20120825
  Serious: No
  Sender: FDA-Public Use
  Company Number: US-FOUGERA-2011FO000165

PATIENT
  Age: 83 Year
  Sex: Female

DRUGS (3)
  1. HYDROCORTISONE [Suspect]
     Indication: SKIN DISORDER
     Route: 061
     Dates: start: 20110913, end: 20110916
  2. DOXYCYCLINE [Concomitant]
     Indication: PRODUCT USED FOR UNKNOWN INDICATION
  3. SYNTHROID [Concomitant]
     Indication: PRODUCT USED FOR UNKNOWN INDICATION

REACTIONS (2)
  - RASH PUSTULAR [None]
  - RASH [None]
